FAERS Safety Report 19054207 (Version 3)
Quarter: 2021Q3

REPORT INFORMATION
  Report Type: Spontaneous
  Country: US (occurrence: US)
  Receive Date: 20210325
  Receipt Date: 20210707
  Transmission Date: 20211014
  Serious: Yes (Other)
  Sender: FDA-Public Use
  Company Number: US-TEVA-2021-US-1893764

PATIENT
  Age: 54 Year
  Sex: Female

DRUGS (1)
  1. AJOVY [Suspect]
     Active Substance: FREMANEZUMAB-VFRM
     Dosage: 225 MG / 1.5 ML
     Route: 065
     Dates: start: 202010

REACTIONS (4)
  - Cerebrovascular accident [Unknown]
  - Device leakage [Unknown]
  - Device difficult to use [Unknown]
  - Visual impairment [Unknown]
